FAERS Safety Report 7069763-3 (Version None)
Quarter: 2010Q4

REPORT INFORMATION
  Report Type: 
  Country: None (occurrence: None)
  Receive Date: 20101028
  Receipt Date: 20100614
  Transmission Date: 20110411
  Serious: No
  Sender: FDA-Public Use
  Company Number: US-WYE-H15626810

PATIENT
  Sex: Male
  Weight: 100.33 kg

DRUGS (8)
  1. MYLOTARG [Suspect]
     Indication: ACUTE MYELOID LEUKAEMIA RECURRENT
     Dosage: 3 MG/M^2 ON DAY 4
     Route: 042
     Dates: start: 20080901, end: 20080901
  2. MYLOTARG [Suspect]
     Dosage: 3 MG/M^2 ON DAY 4
     Route: 042
     Dates: start: 20100301, end: 20100301
  3. FLUDARABINE [Suspect]
     Indication: ACUTE MYELOID LEUKAEMIA RECURRENT
     Dosage: 30 MG/M^2 ON DAY 1 THROUGH 3
     Route: 042
     Dates: start: 20100301, end: 20100301
  4. FLUDARABINE [Suspect]
     Dosage: 30 MG/M^2 ON DAY 1 THROUGH 3
     Route: 042
     Dates: start: 20080901, end: 20080901
  5. IDARUBICIN HCL [Suspect]
     Indication: ACUTE MYELOID LEUKAEMIA RECURRENT
     Dosage: 5 MG/M^2; FREQUENCY NOT PROVIDED
     Route: 065
     Dates: start: 20100301, end: 20100301
  6. IDARUBICIN HCL [Suspect]
     Dosage: 5 MG/M^2; FREQUENCY NOT PROVIDED
     Route: 042
     Dates: start: 20080901, end: 20080901
  7. CYTARABINE [Suspect]
     Indication: ACUTE MYELOID LEUKAEMIA RECURRENT
     Dosage: 1 GRAM/M^2 ON DAY 1 THROUGH 3
     Route: 042
     Dates: start: 20100301, end: 20100301
  8. CYTARABINE [Suspect]
     Dosage: 1 GRAM/M^2 ON DAY 1 THROUGH 3
     Route: 042
     Dates: start: 20080901, end: 20080901

REACTIONS (2)
  - DRUG INEFFECTIVE [None]
  - ELECTROCARDIOGRAM QT PROLONGED [None]
